FAERS Safety Report 5412062-3 (Version None)
Quarter: 2007Q3

REPORT INFORMATION
  Report Type: 
  Country: None (occurrence: None)
  Receive Date: 20070809
  Receipt Date: 20070730
  Transmission Date: 20080115
  Serious: Yes (Other)
  Sender: FDA-Public Use
  Company Number: 17125

PATIENT
  Age: 17 Year
  Sex: Male

DRUGS (10)
  1. BLEOMYCIN [Suspect]
     Indication: BONE SARCOMA
  2. LEUCOVORIN CALCIUM [Suspect]
     Indication: BONE SARCOMA
  3. METHOTREXATE [Suspect]
     Indication: BONE SARCOMA
  4. METHOTREXATE [Suspect]
     Indication: BONE SARCOMA
  5. DOXORUBICIN HYDROCHLORIDE [Suspect]
     Indication: BONE SARCOMA
  6. DOXORUBICIN HYDROCHLORIDE [Suspect]
     Indication: BONE SARCOMA
     Dosage: 75 MG/M2
  7. DACTINOMYCIN [Suspect]
     Indication: BONE SARCOMA
  8. CYCLOPHOSPHAMIDE [Suspect]
     Indication: BONE SARCOMA
  9. CYCLOPHOSPHAMIDE [Suspect]
     Dosage: 600 MG/M2
  10. CISPLATIN [Suspect]
     Indication: BONE SARCOMA

REACTIONS (2)
  - LYMPHOID TISSUE HYPERPLASIA [None]
  - MUCOEPIDERMOID CARCINOMA [None]
